FAERS Safety Report 20556370 (Version 2)
Quarter: 2022Q1

REPORT INFORMATION
  Report Type: Report from Study
  Country: MX (occurrence: MX)
  Receive Date: 20220305
  Receipt Date: 20220321
  Transmission Date: 20220424
  Serious: Yes (Other)
  Sender: FDA-Public Use
  Company Number: MX-NOVARTISPH-NVSC2022MX052420

PATIENT
  Age: 77 Year
  Sex: Female
  Weight: 70 kg

DRUGS (7)
  1. EXELON [Suspect]
     Active Substance: RIVASTIGMINE TARTRATE
     Indication: Dementia Alzheimer^s type
     Dosage: 4.6 MG, QD (9 MG / EXELON 5 CM2 PATCH)
     Route: 058
     Dates: start: 2019
  2. EXELON [Suspect]
     Active Substance: RIVASTIGMINE TARTRATE
     Dosage: 9.5 MG, QD (18 MG / EXELON 10 CM2 PATCH)
     Route: 058
     Dates: start: 20210707
  3. EXELON [Suspect]
     Active Substance: RIVASTIGMINE TARTRATE
     Dosage: 0.5 DOSAGE FORM, QD, (27 MG)
     Route: 058
     Dates: start: 20210707
  4. EXELON [Suspect]
     Active Substance: RIVASTIGMINE TARTRATE
     Dosage: 1 DOSAGE FORM (27 MG), QD
     Route: 003
     Dates: start: 2019, end: 202008
  5. EXELON [Suspect]
     Active Substance: RIVASTIGMINE TARTRATE
     Dosage: 1.5 DOSAGE FORM (18 MG), QD
     Route: 003
     Dates: start: 20210707
  6. EXELON [Suspect]
     Active Substance: RIVASTIGMINE TARTRATE
     Dosage: UNK
     Route: 065
     Dates: start: 20210701
  7. CITICOLINE [Concomitant]
     Active Substance: CITICOLINE
     Indication: Dementia
     Dosage: UNK
     Route: 048
     Dates: start: 2019

REACTIONS (4)
  - Pulmonary thrombosis [Recovered/Resolved]
  - Hypertension [Recovered/Resolved]
  - Product use issue [Unknown]
  - Product prescribing error [Not Recovered/Not Resolved]

NARRATIVE: CASE EVENT DATE: 20200801
